FAERS Safety Report 19789128 (Version 1)
Quarter: 2021Q3

REPORT INFORMATION
  Report Type: Spontaneous
  Country: CA (occurrence: CA)
  Receive Date: 20210904
  Receipt Date: 20210904
  Transmission Date: 20211014
  Serious: Yes (Hospitalization)
  Sender: FDA-Public Use
  Company Number: CA-ACCORD-236985

PATIENT
  Sex: Male

DRUGS (10)
  1. FLUOROURACIL. [Suspect]
     Active Substance: FLUOROURACIL
     Indication: PRODUCT USED FOR UNKNOWN INDICATION
  2. IRON [Concomitant]
     Active Substance: IRON
  3. BISOPROLOL [Concomitant]
     Active Substance: BISOPROLOL
  4. ATORVASTATIN [Concomitant]
     Active Substance: ATORVASTATIN
  5. TRESIBA [Concomitant]
     Active Substance: INSULIN DEGLUDEC
  6. RAMIPRIL. [Concomitant]
     Active Substance: RAMIPRIL
  7. PANTOPRAZOLE [Concomitant]
     Active Substance: PANTOPRAZOLE
  8. TRAJENTA [Concomitant]
     Active Substance: LINAGLIPTIN
  9. LEVOTHYROXINE. [Concomitant]
     Active Substance: LEVOTHYROXINE
  10. MACROGOL [Concomitant]
     Active Substance: POLYETHYLENE GLYCOLS

REACTIONS (16)
  - Occult blood positive [Unknown]
  - Catheter site swelling [Unknown]
  - Anaemia [Unknown]
  - Catheter site related reaction [Unknown]
  - Asthenia [Unknown]
  - Catheter site erythema [Unknown]
  - Pallor [Unknown]
  - Gait disturbance [Unknown]
  - Urine output decreased [Unknown]
  - Dizziness [Unknown]
  - Hypotension [Unknown]
  - Gastrointestinal disorder [Unknown]
  - Hyperhidrosis [Unknown]
  - Malaise [Unknown]
  - Peptic ulcer [Unknown]
  - Catheter site thrombosis [Unknown]
